FAERS Safety Report 8386564-4 (Version None)
Quarter: 2012Q2

REPORT INFORMATION
  Report Type: 
  Country: None (occurrence: None)
  Receive Date: 20120525
  Receipt Date: 20110815
  Transmission Date: 20120825
  Serious: No
  Sender: FDA-Public Use
  Company Number: US-GLAXOSMITHKLINE-A0941098A

PATIENT
  Age: 43 Year
  Sex: Female

DRUGS (7)
  1. SALINE [Concomitant]
  2. ADVIL [Concomitant]
  3. VITAMIN D [Concomitant]
  4. VERAMYST [Suspect]
     Indication: RHINITIS ALLERGIC
     Dosage: 2SPR TWICE PER DAY
     Route: 045
  5. DIAZEPAM [Concomitant]
  6. PAXIL [Concomitant]
  7. UNKNOWN MEDICATION [Concomitant]

REACTIONS (6)
  - EPISTAXIS [None]
  - PRODUCT QUALITY ISSUE [None]
  - DRUG INEFFECTIVE [None]
  - THROAT IRRITATION [None]
  - NASAL DRYNESS [None]
  - MIGRAINE [None]
